FAERS Safety Report 21388187 (Version 1)
Quarter: 2022Q3

REPORT INFORMATION
  Report Type: Spontaneous
  Country: GR (occurrence: GR)
  Receive Date: 20220928
  Receipt Date: 20220928
  Transmission Date: 20221026
  Serious: Yes (Disabling)
  Sender: FDA-Public Use
  Company Number: GR-LUNDBECK-DKLU3052570

PATIENT
  Sex: Female
  Weight: 57 kg

DRUGS (1)
  1. ESCITALOPRAM OXALATE [Suspect]
     Active Substance: ESCITALOPRAM OXALATE
     Indication: Panic attack
     Dates: start: 20140110, end: 20220222

REACTIONS (10)
  - Illusion [Unknown]
  - Cerebral disorder [Unknown]
  - Nervous system disorder [Unknown]
  - Peripheral vascular disorder [Unknown]
  - Arthralgia [Unknown]
  - Amnesia [Unknown]
  - Fatigue [Unknown]
  - Migraine with aura [Unknown]
  - Dysphagia [Unknown]
  - Intentional product use issue [Unknown]

NARRATIVE: CASE EVENT DATE: 20210101
